FAERS Safety Report 10077951 (Version 1)
Quarter: 2014Q2

REPORT INFORMATION
  Report Type: Spontaneous
  Country: GB (occurrence: GB)
  Receive Date: 20140415
  Receipt Date: 20140415
  Transmission Date: 20141212
  Serious: Yes (Other)
  Sender: FDA-Public Use
  Company Number: GB-009507513-1404GBR007299

PATIENT
  Age: 77 Year
  Sex: Male

DRUGS (3)
  1. MIRTAZAPINE [Suspect]
     Indication: DEPRESSION
     Dosage: 60 MG, ONLY TAKEN TWICE
     Route: 048
     Dates: start: 201401, end: 20140228
  2. BENDROFLUMETHIAZIDE [Concomitant]
  3. LOSARTAN POTASSIUM 12,5 MG [Concomitant]
     Route: 048

REACTIONS (3)
  - Convulsion [Recovered/Resolved]
  - Syncope [Recovered/Resolved]
  - Accidental overdose [Recovered/Resolved]
